FAERS Safety Report 8869981 (Version 1)
Quarter: 2012Q4

REPORT INFORMATION
  Report Type: Spontaneous
  Country: US (occurrence: None)
  Receive Date: 20121025
  Receipt Date: 20121025
  Transmission Date: 20130627
  Serious: No
  Sender: FDA-Public Use
  Company Number: None

PATIENT
  Age: 79 Year
  Sex: Male
  Weight: 83 kg

DRUGS (1)
  1. TERAZOSIN [Suspect]
     Indication: BPH
     Dosage: 1 MG ONCE PO
     Route: 048
     Dates: start: 20121003, end: 20121004

REACTIONS (3)
  - Hypotension [None]
  - Fall [None]
  - Unevaluable event [None]
